FAERS Safety Report 16549144 (Version 1)
Quarter: 2019Q3

REPORT INFORMATION
  Report Type: Spontaneous
  Country: US (occurrence: US)
  Receive Date: 20190709
  Receipt Date: 20190709
  Transmission Date: 20191004
  Serious: Yes (Hospitalization)
  Sender: FDA-Public Use
  Company Number: US-FRESENIUS MEDICAL CARE RENAL THERAPIES GROUP-FMC-1907-000854

PATIENT
  Sex: Male

DRUGS (7)
  1. BICARBONATE [Concomitant]
     Active Substance: SODIUM BICARBONATE
  2. LIQUACEL [Concomitant]
  3. MIRCERA [Concomitant]
     Active Substance: METHOXY POLYETHYLENE GLYCOL-EPOETIN BETA
  4. GRANUFLO [Concomitant]
     Active Substance: ACETIC ACID\SODIUM ACETATE
  5. VENOFER [Concomitant]
     Active Substance: IRON SUCROSE
  6. 0.9% SODIUM CHLORIDE INJECTION [Suspect]
     Active Substance: SODIUM CHLORIDE
     Indication: END STAGE RENAL DISEASE
  7. HEPARIN [Concomitant]
     Active Substance: HEPARIN SODIUM

REACTIONS (1)
  - Haemolysis [Unknown]
